FAERS Safety Report 13847817 (Version 1)
Quarter: 2017Q3

REPORT INFORMATION
  Report Type: Spontaneous
  Country: US (occurrence: US)
  Receive Date: 20170808
  Receipt Date: 20170808
  Transmission Date: 20171127
  Serious: No
  Sender: FDA-Public Use
  Company Number: None

PATIENT
  Sex: Female
  Weight: 72.9 kg

DRUGS (1)
  1. LAMOTRIGINE. [Suspect]
     Active Substance: LAMOTRIGINE
     Dosage: ?          QUANTITY:1 TABLET(S);?
     Route: 048

REACTIONS (5)
  - Impaired work ability [None]
  - Product substitution issue [None]
  - Dizziness [None]
  - Diplopia [None]
  - Vision blurred [None]

NARRATIVE: CASE EVENT DATE: 20160401
